FAERS Safety Report 8846891 (Version 1)
Quarter: 2012Q4

REPORT INFORMATION
  Report Type: 
  Country: FR (occurrence: FR)
  Receive Date: 20121018
  Receipt Date: 20121018
  Transmission Date: 20130627
  Serious: Yes (Hospitalization)
  Sender: FDA-Public Use
  Company Number: FR-PFIZER INC-2012251271

PATIENT
  Age: 79 Year
  Sex: Male

DRUGS (7)
  1. FUROSEMIDE SODIUM\SPIRONOLACTONE [Suspect]
     Dosage: 1 DF, 1x/day
     Route: 048
  2. RAMIPRIL [Interacting]
     Dosage: 5 mg, UNK
     Route: 048
  3. BUMETANIDE [Interacting]
     Indication: OEDEMA PERIPHERAL
     Dosage: 2 mg, 1x/day
     Route: 048
     Dates: start: 20120723, end: 20120728
  4. DETENSIEL [Concomitant]
     Dosage: UNK
  5. TAHOR [Concomitant]
     Dosage: UNK
  6. STAGID [Concomitant]
     Dosage: UNK
  7. DIFFU K [Concomitant]
     Dosage: UNK

REACTIONS (3)
  - Drug interaction [Recovered/Resolved]
  - Blood creatinine increased [Recovered/Resolved]
  - Hypokalaemia [Recovered/Resolved]
